FAERS Safety Report 6874702-1 (Version None)
Quarter: 2010Q3

REPORT INFORMATION
  Report Type: 
  Country: None (occurrence: None)
  Receive Date: 20100722
  Receipt Date: 20100709
  Transmission Date: 20110219
  Serious: Yes (Death, Life-Threatening)
  Sender: FDA-Public Use
  Company Number: 2010P1000243

PATIENT
  Age: 69 Year
  Sex: Female
  Weight: 148 kg

DRUGS (43)
  1. AMIODARONE HCL [Suspect]
     Indication: ATRIAL FIBRILLATION
     Dosage: ; IV
     Route: 042
     Dates: start: 20071202
  2. HEPARIN SODIUM [Suspect]
     Indication: STENT PLACEMENT
     Dosage: 4000 U; X1;IV,1000 U; X1;IV, 5000; U; X1; IV, 2000 U;X1;IV, 5000 U; Q8H; SC
     Route: 042
     Dates: start: 20071024, end: 20071024
  3. HEPARIN SODIUM [Suspect]
     Indication: STENT PLACEMENT
     Dosage: 4000 U; X1;IV,1000 U; X1;IV, 5000; U; X1; IV, 2000 U;X1;IV, 5000 U; Q8H; SC
     Route: 042
     Dates: start: 20071024, end: 20071024
  4. HEPARIN SODIUM [Suspect]
     Indication: STENT PLACEMENT
     Dosage: 4000 U; X1;IV,1000 U; X1;IV, 5000; U; X1; IV, 2000 U;X1;IV, 5000 U; Q8H; SC
     Route: 042
     Dates: start: 20071127, end: 20071127
  5. HEPARIN SODIUM [Suspect]
     Indication: STENT PLACEMENT
     Dosage: 4000 U; X1;IV,1000 U; X1;IV, 5000; U; X1; IV, 2000 U;X1;IV, 5000 U; Q8H; SC
     Route: 042
     Dates: start: 20071130, end: 20071130
  6. HEPARIN SODIUM [Suspect]
     Indication: STENT PLACEMENT
     Dosage: 4000 U; X1;IV,1000 U; X1;IV, 5000; U; X1; IV, 2000 U;X1;IV, 5000 U; Q8H; SC
     Route: 042
     Dates: start: 20071130, end: 20071130
  7. HEPARIN SODIUM [Suspect]
     Indication: STENT PLACEMENT
     Dosage: 4000 U; X1;IV,1000 U; X1;IV, 5000; U; X1; IV, 2000 U;X1;IV, 5000 U; Q8H; SC
     Route: 042
     Dates: start: 20071202, end: 20071204
  8. HEPARIN SODIUM [Suspect]
     Indication: THROMBOSIS PROPHYLAXIS
     Dosage: 650-750 U/HR;IVDRP,  750 U/HR; IVDRP
     Route: 041
     Dates: start: 20071025, end: 20071027
  9. HEPARIN SODIUM [Suspect]
     Indication: THROMBOSIS PROPHYLAXIS
     Dosage: 650-750 U/HR;IVDRP,  750 U/HR; IVDRP
     Route: 041
     Dates: start: 20071127, end: 20071129
  10. METOPROLOL [Concomitant]
  11. TARTRATE [Concomitant]
  12. GLIMEPIRIDE [Concomitant]
  13. OMEPRAZOLE [Concomitant]
  14. STARLIX [Concomitant]
  15. ENALAPRIL MALEATE [Concomitant]
  16. CITALOPRAM [Concomitant]
  17. SIMVASTATIN [Concomitant]
  18. ASPIRIN [Concomitant]
  19. VITAMIN TAB [Concomitant]
  20. PLAVIX [Concomitant]
  21. WARFARIN SODIUM [Concomitant]
  22. SODIUM CHLORIDE 0.9% IN PLASTIC CONTAINER [Concomitant]
  23. MAGNESIUM SULFATE [Concomitant]
  24. INSULIN ASPART [Concomitant]
  25. CEFAZOLIN [Concomitant]
  26. PHENYLEPHRINE HCL [Concomitant]
  27. LEVOFLOXACIN [Concomitant]
  28. DIPHENHYDRAMINE [Concomitant]
  29. FUROSEMIDE [Concomitant]
  30. PREDNISONE [Concomitant]
  31. DILTIAZEM [Concomitant]
  32. RANITIDINE [Concomitant]
  33. MORPHINE [Concomitant]
  34. HYDROMORPHONE [Concomitant]
  35. EPINEPHRINE [Concomitant]
  36. ASPIRIN [Concomitant]
  37. CYCLOBENZAPRINE [Concomitant]
  38. DOCUSATE SODIUM [Concomitant]
  39. MIDODRINE HYDROCHLORIDE [Concomitant]
  40. POTASSIUM CHLORIDE [Concomitant]
  41. ACETAMINOPHEN [Concomitant]
  42. 5% DEXTROSE INJECTION IN MINI-BAG PLUS PLAST CONTAINER [Concomitant]
  43. SODIUM BICARBONATE [Concomitant]

REACTIONS (26)
  - ATELECTASIS [None]
  - ATRIAL FIBRILLATION [None]
  - ATRIOVENTRICULAR BLOCK [None]
  - BLOOD PRESSURE SYSTOLIC INCREASED [None]
  - BRADYCARDIA [None]
  - CARDIAC FAILURE CONGESTIVE [None]
  - CARDIO-RESPIRATORY ARREST [None]
  - CONFUSIONAL STATE [None]
  - DIZZINESS [None]
  - EYE DISORDER [None]
  - FEELING COLD [None]
  - FLUID OVERLOAD [None]
  - HAEMATOMA [None]
  - HALLUCINATION [None]
  - HYPERHIDROSIS [None]
  - HYPOTENSION [None]
  - HYPOVOLAEMIA [None]
  - LISTLESS [None]
  - OCULAR ICTERUS [None]
  - PLEURAL EFFUSION [None]
  - RENAL FAILURE [None]
  - RESPIRATORY DISORDER [None]
  - SKIN WARM [None]
  - THROMBOCYTOPENIA [None]
  - UNRESPONSIVE TO STIMULI [None]
  - VENTRICULAR FIBRILLATION [None]
